FAERS Safety Report 23085570 (Version 1)
Quarter: 2023Q4

REPORT INFORMATION
  Report Type: Report from Study
  Country: US (occurrence: US)
  Receive Date: 20231019
  Receipt Date: 20231019
  Transmission Date: 20240110
  Serious: No
  Sender: FDA-Public Use
  Company Number: US-MIRUM PHARMACEUTICALS, INC.-US-MIRM-000460

PATIENT
  Sex: Female

DRUGS (1)
  1. LIVMARLI [Suspect]
     Active Substance: MARALIXIBAT CHLORIDE
     Indication: Product used for unknown indication
     Route: 048

REACTIONS (6)
  - Jaundice [Not Recovered/Not Resolved]
  - Cough [Unknown]
  - Pruritus [Not Recovered/Not Resolved]
  - Vomiting [Unknown]
  - Drug ineffective [Not Recovered/Not Resolved]
  - Off label use [Not Recovered/Not Resolved]
